FAERS Safety Report 17453798 (Version 1)
Quarter: 2020Q1

REPORT INFORMATION
  Report Type: Spontaneous
  Country: GB (occurrence: GB)
  Receive Date: 20200224
  Receipt Date: 20200224
  Transmission Date: 20200409
  Serious: Yes (Death)
  Sender: FDA-Public Use
  Company Number: GB-EMERGENT BIOSOLUTIONS CANADA INC.-20000137LT

PATIENT
  Age: 44 Year
  Sex: Male

DRUGS (4)
  1. BAT [Suspect]
     Active Substance: EQUINE BOTULINUM NEUROTOXIN A/B/C/D/E/F/G IMMUNE FAB2
     Indication: BOTULISM
  2. DEXAMETHASONE. [Concomitant]
     Active Substance: DEXAMETHASONE
     Route: 042
  3. METRONIDAZOLE. [Concomitant]
     Active Substance: METRONIDAZOLE
     Route: 042
  4. BENZYLPENICILLIN [Concomitant]
     Active Substance: PENICILLIN G
     Route: 042

REACTIONS (2)
  - Cardiac arrest [Fatal]
  - Toxicity to various agents [Fatal]
